FAERS Safety Report 6612448-5 (Version None)
Quarter: 2010Q1

REPORT INFORMATION
  Report Type: 
  Country: None (occurrence: None)
  Receive Date: 20100303
  Receipt Date: 20100301
  Transmission Date: 20100710
  Serious: Yes (Death, Other)
  Sender: FDA-Public Use
  Company Number: PHEH2009US14561

PATIENT
  Sex: Female
  Weight: 59.864 kg

DRUGS (5)
  1. GLEEVEC [Suspect]
     Indication: CHRONIC MYELOID LEUKAEMIA
     Dosage: 400 MG, DAILY
     Route: 048
     Dates: start: 20070201
  2. PROCARDIA XL [Concomitant]
     Dosage: UNK
  3. AROMASIN [Concomitant]
     Indication: BREAST CANCER
     Dosage: 25 MG, QD
     Route: 048
  4. VITAMIN D [Concomitant]
  5. CALCIUM [Concomitant]

REACTIONS (6)
  - ANGINA PECTORIS [None]
  - BREAST CANCER METASTATIC [None]
  - METASTASES TO HEART [None]
  - METASTASES TO LUNG [None]
  - PALPITATIONS [None]
  - PULMONARY MASS [None]
